FAERS Safety Report 9841448 (Version 9)
Quarter: 2016Q2

REPORT INFORMATION
  Report Type: Report from Study
  Country: KR (occurrence: KR)
  Receive Date: 20140124
  Receipt Date: 20160415
  Transmission Date: 20160815
  Serious: Yes (Hospitalization)
  Sender: FDA-Public Use
  Company Number: KR-ROCHE-1332708

PATIENT
  Age: 55 Year
  Sex: Male
  Weight: 61 kg

DRUGS (89)
  1. LANSTON LFDT [Concomitant]
     Active Substance: LANSOPRAZOLE
     Indication: ABDOMINAL PAIN UPPER
     Route: 048
     Dates: start: 20131222, end: 20131224
  2. MANNITOL. [Concomitant]
     Active Substance: MANNITOL
     Dosage: INDICATION: CISPLATIN POSTMEDICATION
     Route: 042
     Dates: start: 20140107, end: 20140403
  3. MEDILAC DS [Concomitant]
     Indication: ABDOMINAL DISCOMFORT
     Route: 048
     Dates: start: 20140108, end: 20140128
  4. MACPERAN [Concomitant]
     Route: 042
     Dates: start: 20140227, end: 20140227
  5. FEROBA-YOU SR [Concomitant]
     Indication: ANAEMIA
     Route: 048
     Dates: start: 20140114, end: 20140428
  6. FEROBA-YOU SR [Concomitant]
     Route: 048
     Dates: start: 20140128, end: 20140203
  7. TANTUM ORAL RINSE [Concomitant]
     Route: 065
     Dates: start: 20140314, end: 20140314
  8. SODIUM BICARBONATE. [Concomitant]
     Active Substance: SODIUM BICARBONATE
     Indication: STOMATITIS
     Route: 050
     Dates: start: 20140108, end: 20140109
  9. HUMALOG [Concomitant]
     Active Substance: INSULIN LISPRO
     Indication: DIABETES MELLITUS
     Route: 058
     Dates: start: 20140112, end: 20140113
  10. DISTILLED WATER [Concomitant]
     Dosage: MIX OF TAZOPERAN
     Route: 042
     Dates: start: 20140430, end: 20140501
  11. MASI [Concomitant]
     Dosage: FOR MAGNESIUM SUPPLY
     Route: 042
     Dates: start: 20140429, end: 20140429
  12. PLACEBO [Suspect]
     Active Substance: UNSPECIFIED INGREDIENT
     Indication: HER-2 POSITIVE GASTRIC CANCER
     Dosage: MOST RECENT DOSE WAS TAKEN ON 07/JAN/2014.
     Route: 042
     Dates: start: 20140107
  13. TRASTUZUMAB [Suspect]
     Active Substance: TRASTUZUMAB
     Indication: HER-2 POSITIVE GASTRIC CANCER
     Dosage: LOADING DOSE
     Route: 042
     Dates: start: 20140107
  14. MIDAZOLAM HYDROCHLORIDE. [Concomitant]
     Active Substance: MIDAZOLAM HYDROCHLORIDE
     Indication: SEDATION
     Route: 042
     Dates: start: 20140505, end: 20140505
  15. MIDAZOLAM HYDROCHLORIDE. [Concomitant]
     Active Substance: MIDAZOLAM HYDROCHLORIDE
     Route: 042
     Dates: start: 20140505, end: 20140505
  16. DEXAMETHASONE. [Concomitant]
     Active Substance: DEXAMETHASONE
     Indication: PREMEDICATION
     Route: 048
     Dates: start: 20140107, end: 20140406
  17. LASIX [Concomitant]
     Active Substance: FUROSEMIDE
     Dosage: TRANSFUSION POSTMEDICATION
     Route: 042
     Dates: start: 20140327, end: 20140430
  18. LASIX [Concomitant]
     Active Substance: FUROSEMIDE
     Dosage: TRANSFUSION POSTMEDICATION
     Route: 042
     Dates: start: 20140227, end: 20140227
  19. EMEND [Concomitant]
     Active Substance: APREPITANT
     Indication: NAUSEA
     Route: 048
     Dates: start: 20130107, end: 20140403
  20. PHENIRAMINE [Concomitant]
     Active Substance: PHENIRAMINE
     Indication: PREMEDICATION
     Dosage: TRASTUZUMAB PRE + POSTMEDICATION
     Route: 042
     Dates: start: 20140107, end: 20140107
  21. PHENIRAMINE [Concomitant]
     Active Substance: PHENIRAMINE
     Route: 042
     Dates: start: 20140121, end: 20140430
  22. MAGNESIUM OXIDE. [Concomitant]
     Active Substance: MAGNESIUM OXIDE
     Indication: CONSTIPATION
     Route: 048
     Dates: start: 20140108, end: 20140114
  23. FOLCID [Concomitant]
     Indication: ANAEMIA
     Route: 048
     Dates: start: 20140104, end: 20140428
  24. ENCOVER [Concomitant]
     Route: 048
     Dates: start: 20140310, end: 20140310
  25. MUCOSTEN [Concomitant]
     Indication: PREMEDICATION
     Route: 042
     Dates: start: 20140227, end: 20140411
  26. THIAMINE. [Concomitant]
     Active Substance: THIAMINE
     Dosage: FOR VIT-B SUPPLY
     Route: 042
     Dates: start: 20140501, end: 20140504
  27. CISPLATIN. [Suspect]
     Active Substance: CISPLATIN
     Indication: HER-2 POSITIVE GASTRIC CANCER
     Route: 042
     Dates: start: 20140107
  28. ULTRACET [Concomitant]
     Active Substance: ACETAMINOPHEN\TRAMADOL HYDROCHLORIDE
     Indication: ABDOMINAL PAIN UPPER
     Route: 048
     Dates: start: 20140105, end: 20140225
  29. BUSCOPAN [Concomitant]
     Active Substance: BUTYLSCOPOLAMINE BROMIDE
     Route: 030
     Dates: start: 20140429, end: 20140429
  30. HUMULIN R [Concomitant]
     Active Substance: INSULIN HUMAN
     Route: 058
     Dates: start: 20140309, end: 20140309
  31. SODIUM CHLORIDE. [Concomitant]
     Active Substance: SODIUM CHLORIDE
     Dosage: NS 0.45% INJ FOR MORPHINE MIX
     Route: 042
     Dates: start: 20140227, end: 20140303
  32. SODIUM CHLORIDE. [Concomitant]
     Active Substance: SODIUM CHLORIDE
     Dosage: MIX OF HUMULIN R
     Route: 042
     Dates: start: 20140112, end: 20140112
  33. SMOFLIPID [Concomitant]
     Active Substance: FISH OIL\MEDIUM-CHAIN TRIGLYCERIDES\OLIVE OIL\SOYBEAN OIL
     Route: 042
     Dates: start: 20140414, end: 20140414
  34. TAZOPERAN (PIPERACILLIN SODIUM/TAZOBACTAM SODIUM) [Concomitant]
     Dosage: FOR INFLAMMATORY TREATMENT
     Route: 042
     Dates: start: 20140430, end: 20140501
  35. TAZOPERAN (PIPERACILLIN SODIUM/TAZOBACTAM SODIUM) [Concomitant]
     Route: 042
     Dates: start: 20140501, end: 20140506
  36. TRASTUZUMAB [Suspect]
     Active Substance: TRASTUZUMAB
     Dosage: MAINTAINANCE DOSE
     Route: 042
  37. DEXAMETHASONE. [Concomitant]
     Active Substance: DEXAMETHASONE
     Route: 042
     Dates: start: 20140107, end: 20140306
  38. DEXAMETHASONE. [Concomitant]
     Active Substance: DEXAMETHASONE
     Route: 042
     Dates: start: 20140121, end: 20140121
  39. LANSTON [Concomitant]
     Active Substance: LANSOPRAZOLE
     Indication: ABDOMINAL PAIN UPPER
     Route: 048
     Dates: start: 20131223, end: 20140216
  40. LANSTON [Concomitant]
     Active Substance: LANSOPRAZOLE
     Route: 048
     Dates: start: 20140128, end: 20140202
  41. MACPERAN [Concomitant]
     Indication: SEDATION
     Route: 042
     Dates: start: 20140429, end: 20140429
  42. TANTUM ORAL RINSE [Concomitant]
     Indication: STOMATITIS
     Route: 050
     Dates: start: 20140108, end: 20140401
  43. SODIUM BICARBONATE. [Concomitant]
     Active Substance: SODIUM BICARBONATE
     Route: 042
     Dates: start: 20140430, end: 20140503
  44. BUSCOPAN [Concomitant]
     Active Substance: BUTYLSCOPOLAMINE BROMIDE
     Indication: OESOPHAGOGASTRODUODENOSCOPY
     Route: 030
     Dates: start: 20140226, end: 20140303
  45. HUMALOG [Concomitant]
     Active Substance: INSULIN LISPRO
     Route: 058
     Dates: start: 20140204, end: 20140204
  46. HUMULIN R [Concomitant]
     Active Substance: INSULIN HUMAN
     Indication: DIABETES MELLITUS
     Route: 042
     Dates: start: 20140112, end: 20140112
  47. HUMULIN R [Concomitant]
     Active Substance: INSULIN HUMAN
     Route: 058
     Dates: start: 20140408, end: 20140413
  48. SODIUM CHLORIDE. [Concomitant]
     Active Substance: SODIUM CHLORIDE
     Route: 042
     Dates: start: 20140320, end: 20140320
  49. SODIUM CHLORIDE. [Concomitant]
     Active Substance: SODIUM CHLORIDE
     Dosage: MIX OF MORPHINE
     Route: 042
     Dates: start: 20140502, end: 20140506
  50. DUROGESIC D TRANS [Concomitant]
     Active Substance: FENTANYL
     Indication: ABDOMINAL PAIN UPPER
     Route: 050
     Dates: start: 20140304, end: 20140428
  51. ALBIS [Concomitant]
     Active Substance: BISMUTH SUBCITRATE\RANITIDINE HYDROCHLORIDE\SUCRALFATE
     Indication: EPIGASTRIC DISCOMFORT
     Route: 048
     Dates: start: 20140228, end: 20140428
  52. POFOL [Concomitant]
     Indication: OESOPHAGOGASTRODUODENOSCOPY
     Route: 042
     Dates: start: 20140303, end: 20140303
  53. TRIDOL [Concomitant]
     Indication: ABDOMINAL PAIN UPPER
     Route: 042
     Dates: start: 20140227, end: 20140227
  54. MORPHINE [Concomitant]
     Active Substance: MORPHINE
     Indication: PAIN
     Route: 042
     Dates: start: 20140227, end: 20140303
  55. SMOFLIPID [Concomitant]
     Active Substance: FISH OIL\MEDIUM-CHAIN TRIGLYCERIDES\OLIVE OIL\SOYBEAN OIL
     Dosage: FOR NUTRITION
     Route: 042
     Dates: start: 20140217, end: 20140217
  56. NEXIUM [Concomitant]
     Active Substance: ESOMEPRAZOLE MAGNESIUM
     Indication: GASTROINTESTINAL HAEMORRHAGE
     Route: 042
     Dates: start: 20140429, end: 20140502
  57. CAPECITABINE. [Suspect]
     Active Substance: CAPECITABINE
     Indication: HER-2 POSITIVE GASTRIC CANCER
     Route: 048
     Dates: start: 20140107
  58. EMEND [Concomitant]
     Active Substance: APREPITANT
     Indication: PREMEDICATION
     Route: 048
     Dates: start: 20140107, end: 20140405
  59. SODIUM BICARBONATE. [Concomitant]
     Active Substance: SODIUM BICARBONATE
     Route: 042
     Dates: start: 20140501, end: 20140503
  60. SODIUM CHLORIDE. [Concomitant]
     Active Substance: SODIUM CHLORIDE
     Indication: DEHYDRATION
     Dosage: INDICATION: TRASTUZUMAB AND CISPLATIN POSTMEDICATION
     Route: 042
     Dates: start: 20131223, end: 20140429
  61. SODIUM CHLORIDE. [Concomitant]
     Active Substance: SODIUM CHLORIDE
     Route: 042
     Dates: start: 20140121, end: 20140121
  62. VASELINE PURE [Concomitant]
     Active Substance: PETROLATUM
     Dosage: FOR RECTAL EXAM
     Route: 054
     Dates: start: 20140504, end: 20140504
  63. PENIRAMIN [Concomitant]
     Indication: SEDATION
     Route: 042
     Dates: start: 20140429, end: 20140505
  64. ATIVAN [Concomitant]
     Active Substance: LORAZEPAM
     Indication: SEDATION
     Route: 042
     Dates: start: 20140429, end: 20140505
  65. LASIX [Concomitant]
     Active Substance: FUROSEMIDE
     Route: 042
     Dates: start: 20140121, end: 20140121
  66. LASIX [Concomitant]
     Active Substance: FUROSEMIDE
     Dosage: TRANSFUSION POSTMEDICATION
     Route: 042
     Dates: start: 20140401, end: 20140401
  67. MACPERAN [Concomitant]
     Indication: NAUSEA
     Route: 042
     Dates: start: 20140112, end: 20140203
  68. SODIUM BICARBONATE. [Concomitant]
     Active Substance: SODIUM BICARBONATE
     Indication: METABOLIC ACIDOSIS
     Route: 050
     Dates: start: 20140217, end: 20140217
  69. DISTILLED WATER [Concomitant]
     Dosage: MIX OF TAZOPERAN
     Route: 065
     Dates: start: 20140501, end: 20140506
  70. SODIUM CHLORIDE. [Concomitant]
     Active Substance: SODIUM CHLORIDE
     Dosage: MIX OF CACL2 INJ
     Route: 042
     Dates: start: 20140429, end: 20140429
  71. MORPHINE [Concomitant]
     Active Substance: MORPHINE
     Route: 042
     Dates: start: 20140502, end: 20140506
  72. MORPHINE [Concomitant]
     Active Substance: MORPHINE
     Route: 042
     Dates: start: 20140502, end: 20140504
  73. ONSERAN [Concomitant]
     Indication: PREMEDICATION
     Route: 042
     Dates: start: 20140128, end: 20140403
  74. PANTOLOC [Concomitant]
     Active Substance: PANTOPRAZOLE SODIUM
     Indication: GASTROINTESTINAL HAEMORRHAGE
     Route: 042
     Dates: start: 20140503, end: 20140506
  75. LASIX [Concomitant]
     Active Substance: FUROSEMIDE
     Indication: PREMEDICATION
     Route: 048
     Dates: start: 20140107, end: 20140403
  76. BUSCOPAN [Concomitant]
     Active Substance: BUTYLSCOPOLAMINE BROMIDE
     Indication: OESOPHAGOGASTRODUODENOSCOPY
     Route: 030
     Dates: start: 20131223, end: 20131223
  77. DISTILLED WATER [Concomitant]
     Indication: STOMATITIS
     Dosage: DISTILLED WATER GARGLE
     Route: 050
     Dates: start: 20140108, end: 20140109
  78. SODIUM CHLORIDE. [Concomitant]
     Active Substance: SODIUM CHLORIDE
     Dosage: MIX OF NEXIUM
     Route: 042
     Dates: start: 20140429, end: 20140502
  79. SODIUM CHLORIDE. [Concomitant]
     Active Substance: SODIUM CHLORIDE
     Dosage: MIX OF MECPERAN, PENIRAMIN, ATIVAN
     Route: 042
     Dates: start: 20140505, end: 20140505
  80. TAGAMET [Concomitant]
     Active Substance: CIMETIDINE
     Indication: EPIGASTRIC DISCOMFORT
     Route: 042
     Dates: start: 20140203, end: 20140203
  81. HARTMANN [Concomitant]
     Active Substance: CALCIUM CHLORIDE\POTASSIUM CHLORIDE\SODIUM CHLORIDE\SODIUM LACTATE
     Route: 042
     Dates: start: 20140403, end: 20140404
  82. DEXAMETHASONE. [Concomitant]
     Active Substance: DEXAMETHASONE
     Route: 042
     Dates: start: 20140307, end: 20140309
  83. MACPERAN [Concomitant]
     Indication: NAUSEA
     Route: 048
     Dates: start: 20140108, end: 20140202
  84. MACPERAN [Concomitant]
     Route: 042
     Dates: start: 20140429, end: 20140505
  85. DIABEX [Concomitant]
     Active Substance: METFORMIN HYDROCHLORIDE
     Indication: DIABETES MELLITUS
     Route: 048
     Dates: start: 20140114, end: 20140402
  86. SODIUM CHLORIDE. [Concomitant]
     Active Substance: SODIUM CHLORIDE
     Dosage: MIX OF SODIUM BICARBONATE
     Route: 042
     Dates: start: 20140430, end: 20140501
  87. MORPHINE [Concomitant]
     Active Substance: MORPHINE
     Route: 042
     Dates: start: 20140501, end: 20140501
  88. KLENZO [Concomitant]
     Indication: STOMATITIS
     Route: 050
     Dates: start: 20140217, end: 20140217
  89. CACL2 [Concomitant]
     Dosage: FOR CALCIUM SUPPLY
     Route: 042
     Dates: start: 20140429, end: 20140429

REACTIONS (2)
  - Dehydration [Recovered/Resolved]
  - Decreased appetite [Recovered/Resolved]

NARRATIVE: CASE EVENT DATE: 20140108
